FAERS Safety Report 14636769 (Version 1)
Quarter: 2018Q1

REPORT INFORMATION
  Report Type: Spontaneous
  Country: FR (occurrence: FR)
  Receive Date: 20180314
  Receipt Date: 20180314
  Transmission Date: 20180509
  Serious: Yes (Hospitalization)
  Sender: FDA-Public Use
  Company Number: FR-TEVA-2018-FR-867326

PATIENT
  Age: 88 Year
  Sex: Male
  Weight: 59 kg

DRUGS (7)
  1. ECONAZOLE [Concomitant]
     Active Substance: ECONAZOLE
     Indication: SKIN LESION
     Route: 003
  2. REFRESH CELLUVISC [Concomitant]
     Active Substance: CARBOXYMETHYLCELLULOSE SODIUM
     Indication: CATARACT
     Route: 047
  3. KARDEGIC [Concomitant]
     Active Substance: ASPIRIN DL-LYSINE
     Route: 048
  4. DACUDOSES [Concomitant]
     Indication: CATARACT
     Route: 047
  5. LEVOTHYROX 25 MICROGRAMMES, COMPRIM? S?CABLE [Concomitant]
     Indication: HYPOTHYROIDISM
     Route: 048
  6. HEMIFUMARATE DE BISOPROLOL [Suspect]
     Active Substance: BISOPROLOL FUMARATE
     Indication: HYPERTENSION
     Route: 048
  7. RAMIPRIL. [Concomitant]
     Active Substance: RAMIPRIL
     Indication: HYPERTENSION
     Route: 048

REACTIONS (1)
  - Skin lesion [Recovering/Resolving]
